FAERS Safety Report 8110321-7 (Version None)
Quarter: 2012Q1

REPORT INFORMATION
  Report Type: 
  Country: None (occurrence: None)
  Receive Date: 20120202
  Receipt Date: 20120121
  Transmission Date: 20120608
  Serious: Yes (Hospitalization)
  Sender: FDA-Public Use
  Company Number: US-ROCHE-1034071

PATIENT
  Age: 74 Year
  Sex: Female
  Weight: 42.4 kg

DRUGS (5)
  1. DOCETAXEL [Suspect]
     Indication: FALLOPIAN TUBE CANCER
     Dosage: REPORTED AS TAXOTERE. SUBSTITUTED FOR PACLITAXEL (TAXOL) AFTER REACTION DURING CYCLE 1 DAY 1
  2. AVASTIN [Suspect]
     Indication: FALLOPIAN TUBE CANCER
     Dosage: OVER 30-90MINS ON DAY 1, BEGINNING WITH CYCLE 2
     Route: 042
     Dates: start: 20110907
  3. PACLITAXEL [Suspect]
     Indication: FALLOPIAN TUBE CANCER
     Dosage: OVER 3 HOURS ON DAY 1
     Route: 042
     Dates: start: 20110907
  4. PACLITAXEL [Suspect]
     Dosage: ON DAY 8
     Route: 033
     Dates: start: 20110907
  5. CISPLATIN [Suspect]
     Indication: FALLOPIAN TUBE CANCER
     Dosage: ON DAY 2
     Route: 033
     Dates: start: 20110907

REACTIONS (4)
  - HYPERTENSION [None]
  - FAILURE TO THRIVE [None]
  - CONFUSIONAL STATE [None]
  - ANXIETY [None]
